FAERS Safety Report 23033401 (Version 4)
Quarter: 2023Q4

REPORT INFORMATION
  Report Type: Spontaneous
  Country: JP (occurrence: JP)
  Receive Date: 20231005
  Receipt Date: 20231113
  Transmission Date: 20240110
  Serious: Yes (Death, Hospitalization, Other)
  Sender: FDA-Public Use
  Company Number: JP-PFIZER INC-202300309804

PATIENT
  Age: 81 Year
  Sex: Female

DRUGS (10)
  1. PAXLOVID [Suspect]
     Active Substance: NIRMATRELVIR\RITONAVIR
     Indication: COVID-19 treatment
     Dosage: [NIRMATRELVIR 150 MG]/[RITONAVIR 100 MG];2X/DAY
     Route: 048
     Dates: start: 20230922, end: 20230922
  2. AMLODIPINE [Concomitant]
     Active Substance: AMLODIPINE BESYLATE
     Indication: Hypertension
     Dosage: UNK
     Route: 048
  3. AMLODIPINE [Concomitant]
     Active Substance: AMLODIPINE BESYLATE
     Dosage: 5 MG, 1X/DAY
     Route: 048
     Dates: start: 20130808
  4. ALFAROL [Concomitant]
     Active Substance: ALFACALCIDOL
     Indication: Osteoporosis
     Dosage: 5 UG, 1X/DAY
     Route: 048
     Dates: start: 20130808
  5. QUERCUS SALICINA STEM [Concomitant]
     Active Substance: QUERCUS SALICINA STEM
     Indication: Calculus urinary
     Dosage: 450 MG, 3X/DAY
     Route: 048
     Dates: start: 20230911
  6. ASTEMIZOLE [Concomitant]
     Active Substance: ASTEMIZOLE
     Indication: COVID-19 treatment
     Dosage: 10 MG, 3X/DAY
     Route: 048
     Dates: start: 20230922
  7. CARBOCYSTEINE [Concomitant]
     Active Substance: CARBOCYSTEINE
     Indication: COVID-19 treatment
     Dosage: 250 MG, 3X/DAY
     Route: 048
     Dates: start: 20230922
  8. CALONAL [Concomitant]
     Active Substance: ACETAMINOPHEN
     Indication: COVID-19 treatment
     Dosage: 500 MG, 3X/DAY
     Route: 048
     Dates: start: 20230922
  9. ALLEGRA [Concomitant]
     Active Substance: FEXOFENADINE HYDROCHLORIDE
     Indication: COVID-19 treatment
     Dosage: 60 MG, 2X/DAY
     Route: 048
     Dates: start: 20230922
  10. BONVIVA [Concomitant]
     Active Substance: IBANDRONATE SODIUM
     Indication: Osteoporosis
     Dosage: 1 MG, MONTHLY
     Route: 042
     Dates: start: 20160520, end: 20230921

REACTIONS (1)
  - Subarachnoid haemorrhage [Fatal]

NARRATIVE: CASE EVENT DATE: 20230923
